FAERS Safety Report 9504112 (Version 2)
Quarter: 2013Q3

REPORT INFORMATION
  Report Type: Spontaneous
  Country: US (occurrence: US)
  Receive Date: 20130906
  Receipt Date: 20130915
  Transmission Date: 20140515
  Serious: No
  Sender: FDA-Public Use
  Company Number: US-009507513-1309USA001643

PATIENT
  Sex: Female
  Weight: 45.35 kg

DRUGS (9)
  1. MIRALAX [Suspect]
     Indication: CONSTIPATION
     Dosage: 17 G, QD
     Route: 048
     Dates: start: 2011
  2. MIRALAX [Suspect]
     Indication: MEDICAL OBSERVATION
  3. SYNTHROID [Concomitant]
     Indication: HYPOTHYROIDISM
     Dosage: UNK, UNKNOWN
  4. DORZOLAMIDE HYDROCHLORIDE [Concomitant]
     Indication: GLAUCOMA
     Dosage: UNK, UNKNOWN
  5. LUMIGAN [Concomitant]
     Indication: GLAUCOMA
     Dosage: UNK, UNKNOWN
  6. MECLIZINE [Concomitant]
     Indication: VERTIGO
     Dosage: 25 MG, PRN
  7. REQUIP [Concomitant]
     Indication: RESTLESS LEGS SYNDROME
     Dosage: UNK, UNKNOWN
  8. ADVIL [Concomitant]
     Indication: ARTHRITIS
     Dosage: UNK, UNKNOWN
  9. CELADRIN [Concomitant]
     Indication: ARTHRITIS
     Dosage: UNK, UNKNOWN

REACTIONS (5)
  - Abdominal distension [Not Recovered/Not Resolved]
  - Flatulence [Not Recovered/Not Resolved]
  - Varicose vein [Not Recovered/Not Resolved]
  - Diarrhoea [Not Recovered/Not Resolved]
  - Incorrect drug administration duration [Unknown]
